FAERS Safety Report 7478022-6 (Version None)
Quarter: 2011Q2

REPORT INFORMATION
  Report Type: 
  Country: None (occurrence: None)
  Receive Date: 20110513
  Receipt Date: 20110502
  Transmission Date: 20111010
  Serious: Yes (Hospitalization)
  Sender: FDA-Public Use
  Company Number: US-AMGEN-USASP2011022722

PATIENT
  Age: 60 Year
  Sex: Female

DRUGS (1)
  1. ENBREL [Suspect]
     Indication: RHEUMATOID ARTHRITIS
     Dosage: 50 MG, QWK
     Dates: start: 20100101

REACTIONS (6)
  - FINGER DEFORMITY [None]
  - ARTHRALGIA [None]
  - FOOT DEFORMITY [None]
  - BONE PAIN [None]
  - DRUG INEFFECTIVE [None]
  - PAIN IN EXTREMITY [None]
